FAERS Safety Report 4536722-1 (Version None)
Quarter: 2004Q4

REPORT INFORMATION
  Report Type: 
  Country: None (occurrence: None)
  Receive Date: 20041220
  Receipt Date: 20041202
  Transmission Date: 20050328
  Serious: Yes (Hospitalization)
  Sender: FDA-Public Use
  Company Number: 2004BI001256

PATIENT
  Age: 39 Year
  Sex: Female
  Weight: 62.5964 kg

DRUGS (4)
  1. AVONEX [Suspect]
     Indication: MULTIPLE SCLEROSIS
     Dosage: 30 UG; QW; IM
     Route: 030
     Dates: start: 20010101, end: 20030101
  2. AVONEX [Suspect]
     Indication: MULTIPLE SCLEROSIS
     Dosage: 30 UG; QW; IM
     Route: 030
     Dates: start: 20030101, end: 20041101
  3. RANITIDINE [Concomitant]
  4. PROMETHAZINE [Concomitant]

REACTIONS (13)
  - ACCIDENTAL OVERDOSE [None]
  - AMNESIA [None]
  - COMA [None]
  - CONDITION AGGRAVATED [None]
  - MULTIPLE SCLEROSIS [None]
  - MYELITIS TRANSVERSE [None]
  - NERVOUS SYSTEM DISORDER [None]
  - SPINAL CORD DISORDER [None]
  - THROMBOSIS [None]
  - TREMOR [None]
  - URINARY RETENTION [None]
  - VISUAL DISTURBANCE [None]
  - WEIGHT DECREASED [None]
